FAERS Safety Report 19475816 (Version 1)
Quarter: 2021Q2

REPORT INFORMATION
  Report Type: Spontaneous
  Country: FR (occurrence: FR)
  Receive Date: 20210630
  Receipt Date: 20210630
  Transmission Date: 20210717
  Serious: Yes (Other)
  Sender: FDA-Public Use
  Company Number: FR-SUN PHARMACEUTICAL INDUSTRIES LTD-2021RR-302526

PATIENT
  Age: 52 Year
  Sex: Male

DRUGS (5)
  1. GEMCITABINE. [Suspect]
     Active Substance: GEMCITABINE
     Indication: SQUAMOUS CELL CARCINOMA OF LUNG
     Dosage: UNK
     Route: 065
  2. PACLITAXEL. [Suspect]
     Active Substance: PACLITAXEL
     Indication: SQUAMOUS CELL CARCINOMA OF LUNG
     Dosage: 3 CYCLES OF CHEMOTHERAPY
     Route: 065
  3. CARBOPLATIN. [Suspect]
     Active Substance: CARBOPLATIN
     Indication: SQUAMOUS CELL CARCINOMA OF LUNG
     Dosage: 3 CYCLES OF CHEMOTHERAPY
     Route: 065
  4. NIVOLUMAB [Concomitant]
     Active Substance: NIVOLUMAB
     Indication: SQUAMOUS CELL CARCINOMA OF LUNG
     Dosage: UNK
     Route: 065
  5. PREDNISONE. [Concomitant]
     Active Substance: PREDNISONE
     Indication: SQUAMOUS CELL CARCINOMA OF LUNG
     Dosage: 1 MILLIGRAM/KILOGRAM, DAILY
     Route: 065

REACTIONS (2)
  - Disease recurrence [Unknown]
  - Myositis [Unknown]
